FAERS Safety Report 20505131 (Version 2)
Quarter: 2022Q1

REPORT INFORMATION
  Report Type: Spontaneous
  Country: US (occurrence: US)
  Receive Date: 20220223
  Receipt Date: 20220330
  Transmission Date: 20220423
  Serious: No
  Sender: FDA-Public Use
  Company Number: US-AMGEN-USASP2022031656

PATIENT
  Age: 43 Year
  Sex: Male

DRUGS (4)
  1. OTEZLA [Suspect]
     Active Substance: APREMILAST
     Indication: Spinal osteoarthritis
     Dosage: 30 MILLIGRAM, BID
     Route: 048
     Dates: start: 20210824
  2. OTEZLA [Suspect]
     Active Substance: APREMILAST
     Indication: Off label use
  3. LEFLUNOMIDE [Concomitant]
     Active Substance: LEFLUNOMIDE
     Dosage: 20 MILLIGRAM
     Route: 065
  4. XYOSTED [Concomitant]
     Active Substance: TESTOSTERONE ENANTHATE
     Dosage: 75/0.5
     Route: 065

REACTIONS (4)
  - Intentional product misuse [Unknown]
  - Off label use [Unknown]
  - Gastrointestinal disorder [Unknown]
  - Product dose omission issue [Unknown]

NARRATIVE: CASE EVENT DATE: 20210824
